FAERS Safety Report 16889422 (Version 2)
Quarter: 2020Q1

REPORT INFORMATION
  Report Type: Spontaneous
  Country: US (occurrence: US)
  Receive Date: 20191007
  Receipt Date: 20200110
  Transmission Date: 20200409
  Serious: Yes (Death, Other)
  Sender: FDA-Public Use
  Company Number: US-BRISTOL-MYERS SQUIBB COMPANY-BMS-2019-095436

PATIENT
  Age: 72 Year
  Sex: Female
  Weight: 73 kg

DRUGS (2)
  1. OPDIVO [Suspect]
     Active Substance: NIVOLUMAB
     Indication: MALIGNANT MELANOMA
     Dosage: 75 MILLIGRAM, Q3WK
     Route: 042
     Dates: start: 20190912, end: 20190912
  2. YERVOY [Suspect]
     Active Substance: IPILIMUMAB
     Indication: MALIGNANT MELANOMA
     Dosage: 225 MILLIGRAM, Q3WK
     Route: 042
     Dates: start: 20190912, end: 20190912

REACTIONS (1)
  - Autoimmune myocarditis [Fatal]

NARRATIVE: CASE EVENT DATE: 20190922
